FAERS Safety Report 17558645 (Version 6)
Quarter: 2023Q2

REPORT INFORMATION
  Report Type: Report from Study
  Country: CA (occurrence: CA)
  Receive Date: 20200318
  Receipt Date: 20230407
  Transmission Date: 20230722
  Serious: Yes (Hospitalization)
  Sender: FDA-Public Use
  Company Number: NVSC2020CA069854

PATIENT
  Age: 4 Year
  Sex: Female
  Weight: 18 kg

DRUGS (5)
  1. MEKINIST [Suspect]
     Active Substance: TRAMETINIB DIMETHYL SULFOXIDE
     Indication: Glioma
     Dosage: 0.625 MG, QD
     Route: 048
     Dates: start: 20190718, end: 20200307
  2. MEKINIST [Suspect]
     Active Substance: TRAMETINIB DIMETHYL SULFOXIDE
     Dosage: 0.625 MG, QD
     Route: 048
     Dates: start: 20200315
  3. DABRAFENIB [Suspect]
     Active Substance: DABRAFENIB
     Indication: Glioma
     Dosage: 50 MG, BID
     Route: 048
     Dates: start: 20190718, end: 20200307
  4. DABRAFENIB [Suspect]
     Active Substance: DABRAFENIB
     Dosage: 50 MG, BID
     Route: 048
     Dates: start: 20200314
  5. AMOXICILLIN [Concomitant]
     Active Substance: AMOXICILLIN
     Indication: Ear infection
     Dosage: 825 MG, BID
     Route: 048
     Dates: start: 20200227

REACTIONS (1)
  - Viral myositis [Recovered/Resolved]

NARRATIVE: CASE EVENT DATE: 20200307
